FAERS Safety Report 7012149-8 (Version None)
Quarter: 2010Q3

REPORT INFORMATION
  Report Type: 
  Country: None (occurrence: None)
  Receive Date: 20100922
  Receipt Date: 20100922
  Transmission Date: 20110219
  Serious: Yes (Other)
  Sender: FDA-Public Use
  Company Number: None

PATIENT
  Age: 59 Year
  Sex: Female
  Weight: 50.8029 kg

DRUGS (1)
  1. VALTREX [Suspect]
     Indication: HERPES ZOSTER
     Dosage: 1G 3X DAILY ORAL
     Route: 048
     Dates: start: 20100618, end: 20100621

REACTIONS (14)
  - ASTHENIA [None]
  - BLOOD PRESSURE DECREASED [None]
  - DEAFNESS [None]
  - DRY MOUTH [None]
  - DYSGEUSIA [None]
  - EYE PAIN [None]
  - HEADACHE [None]
  - INSOMNIA [None]
  - NEURALGIA [None]
  - PYREXIA [None]
  - RASH [None]
  - SKIN LESION [None]
  - SWELLING [None]
  - VISION BLURRED [None]
